FAERS Safety Report 21170912 (Version 2)
Quarter: 2022Q3

REPORT INFORMATION
  Report Type: Report from Study
  Country: IT (occurrence: IT)
  Receive Date: 20220804
  Receipt Date: 20220808
  Transmission Date: 20221027
  Serious: Yes (Hospitalization, Other)
  Sender: FDA-Public Use
  Company Number: None

PATIENT
  Age: 22 Year
  Sex: Female

DRUGS (5)
  1. LYRICA [Suspect]
     Active Substance: PREGABALIN
     Dosage: 14 DF
     Route: 048
     Dates: start: 20220721, end: 20220721
  2. TALOFEN [Suspect]
     Active Substance: PROMAZINE HYDROCHLORIDE
     Dosage: 60 DROP
     Route: 048
     Dates: start: 20220721, end: 20220721
  3. FLURAZEPAM HYDROCHLORIDE [Suspect]
     Active Substance: FLURAZEPAM HYDROCHLORIDE
     Route: 048
     Dates: start: 20220721, end: 20220721
  4. CLOTHIAPINE [Suspect]
     Active Substance: CLOTHIAPINE
     Dosage: 40 DROP
     Dates: start: 20220721, end: 20220721
  5. RIVOTRIL [Suspect]
     Active Substance: CLONAZEPAM
     Dosage: 60 DROP
     Route: 048
     Dates: start: 20220721, end: 20220721

REACTIONS (4)
  - Toxicity to various agents [Recovered/Resolved]
  - Drug abuse [Recovered/Resolved]
  - Coma [Recovered/Resolved]
  - Suicide attempt [Recovered/Resolved]

NARRATIVE: CASE EVENT DATE: 20220721
